FAERS Safety Report 5047343-9 (Version None)
Quarter: 2006Q3

REPORT INFORMATION
  Report Type: 
  Country: None (occurrence: None)
  Receive Date: 20060703
  Receipt Date: 20060626
  Transmission Date: 20061208
  Serious: Yes (Death, Hospitalization)
  Sender: FDA-Public Use
  Company Number: 2006-01388

PATIENT
  Age: 66 Year
  Sex: Male

DRUGS (2)
  1. VELCADE [Suspect]
     Indication: MULTIPLE MYELOMA
     Dosage: 1.40 MG/M2
  2. DEXAMETHASONE [Suspect]

REACTIONS (4)
  - ANAEMIA [None]
  - BRONCHIOLITIS [None]
  - ORTHOSTATIC HYPOTENSION [None]
  - SYNCOPE [None]
